FAERS Safety Report 5370661-1 (Version None)
Quarter: 2007Q2

REPORT INFORMATION
  Report Type: 
  Country: None (occurrence: None)
  Receive Date: 20070618
  Receipt Date: 20060606
  Transmission Date: 20071010
  Serious: Yes (Other)
  Sender: FDA-Public Use
  Company Number: PHEH2006USA06262

PATIENT
  Age: 47 Year
  Sex: Female
  Weight: 50.8 kg

DRUGS (7)
  1. GLEEVEC [Suspect]
     Indication: GASTROINTESTINAL STROMAL TUMOUR
     Dosage: 400 MG, QD, ORAL, NO TREATMENT
     Route: 048
     Dates: start: 20030501, end: 20050901
  2. GLEEVEC [Suspect]
     Indication: GASTROINTESTINAL STROMAL TUMOUR
     Dosage: 400 MG, QD, ORAL, NO TREATMENT
     Route: 048
     Dates: start: 20050901, end: 20060120
  3. GLEEVEC [Suspect]
     Indication: GASTROINTESTINAL STROMAL TUMOUR
     Dosage: 400 MG, QD, ORAL, NO TREATMENT
     Route: 048
     Dates: start: 20060120
  4. TYLENOL PM (DIPHENHYDRAMINE, PARACETAMOL) [Concomitant]
  5. VICODIN [Suspect]
  6. PROTONIX [Concomitant]
  7. PREVACID [Concomitant]

REACTIONS (6)
  - BLOOD BILIRUBIN INCREASED [None]
  - BONE MARROW FAILURE [None]
  - FATIGUE [None]
  - INSOMNIA [None]
  - MALIGNANT NEOPLASM PROGRESSION [None]
  - PAIN [None]
